FAERS Safety Report 24057937 (Version 1)
Quarter: 2024Q3

REPORT INFORMATION
  Report Type: Spontaneous
  Country: ZA (occurrence: ZA)
  Receive Date: 20240707
  Receipt Date: 20240707
  Transmission Date: 20241016
  Serious: Yes (Death, Other)
  Sender: AMGEN
  Company Number: ZA-PFIZER INC-PV202400086078

PATIENT
  Age: 57 Year
  Sex: Male

DRUGS (1)
  1. ENBREL [Suspect]
     Active Substance: BENZYL ALCOHOL\ETANERCEPT
     Indication: Product used for unknown indication
     Dosage: 50 MG, 2X/DAY
     Route: 065
     Dates: start: 20140114, end: 20240530

REACTIONS (2)
  - Death [Fatal]
  - Off label use [Unknown]

NARRATIVE: CASE EVENT DATE: 20240530
